FAERS Safety Report 20553522 (Version 1)
Quarter: 2022Q1

REPORT INFORMATION
  Report Type: Report from Study
  Country: DE (occurrence: DE)
  Receive Date: 20220304
  Receipt Date: 20220304
  Transmission Date: 20220423
  Serious: Yes (Other)
  Sender: FDA-Public Use
  Company Number: DE-BRISTOL-MYERS SQUIBB COMPANY-BMS-2020-099483

PATIENT
  Age: 77 Year
  Sex: Female

DRUGS (4)
  1. NIVOLUMAB [Suspect]
     Active Substance: NIVOLUMAB
     Indication: Malignant melanoma
     Dosage: 480 MILLIGRAM, Q4WK
     Route: 042
     Dates: start: 20200211
  2. METHYLPREDNISOLON [METHYLPREDNISOLONE SODIUM SUCCINATE] [Concomitant]
     Indication: Product used for unknown indication
     Dosage: UNK
     Route: 065
  3. INULIN [Concomitant]
     Active Substance: INULIN
     Indication: Product used for unknown indication
     Dosage: UNK
     Route: 065
  4. MESALAMINE [Concomitant]
     Active Substance: MESALAMINE
     Indication: Product used for unknown indication
     Dosage: UNK
     Route: 065

REACTIONS (3)
  - Autoimmune colitis [Recovering/Resolving]
  - Malignant neoplasm progression [Not Recovered/Not Resolved]
  - Autoimmune enteropathy [Unknown]

NARRATIVE: CASE EVENT DATE: 20201018
